FAERS Safety Report 7597437-9 (Version None)
Quarter: 2011Q3

REPORT INFORMATION
  Report Type: 
  Country: None (occurrence: None)
  Receive Date: 20110708
  Receipt Date: 20110628
  Transmission Date: 20111222
  Serious: Yes (Other)
  Sender: FDA-Public Use
  Company Number: PHHY2011DE57666

PATIENT
  Sex: Female

DRUGS (1)
  1. EXJADE [Suspect]
     Indication: IRON OVERLOAD
     Dosage: 1500 MG, PER DAY
     Route: 048

REACTIONS (2)
  - SERUM FERRITIN INCREASED [None]
  - PAROXYSMAL NOCTURNAL HAEMOGLOBINURIA [None]
